FAERS Safety Report 17354726 (Version 1)
Quarter: 2020Q1

REPORT INFORMATION
  Report Type: Spontaneous
  Country: US (occurrence: US)
  Receive Date: 20200130
  Receipt Date: 20200130
  Transmission Date: 20200409
  Serious: No
  Sender: FDA-Public Use
  Company Number: None

PATIENT
  Age: 62 Year
  Sex: Female

DRUGS (11)
  1. AMLODIPINE [Concomitant]
     Active Substance: AMLODIPINE BESYLATE
     Dates: start: 20190813
  2. PREDNISONE. [Concomitant]
     Active Substance: PREDNISONE
     Dates: start: 20200123
  3. ATENOLOL. [Concomitant]
     Active Substance: ATENOLOL
     Dates: start: 20191206
  4. BENZONATATE. [Concomitant]
     Active Substance: BENZONATATE
     Dates: start: 20200115
  5. LOSARTAN POT [Concomitant]
     Active Substance: LOSARTAN POTASSIUM
  6. XELJANZ [Suspect]
     Active Substance: TOFACITINIB CITRATE
     Indication: COUGH
     Route: 048
     Dates: start: 20190506
  7. PROAIR HFA AER [Concomitant]
     Dates: start: 20200103
  8. SIMVASTATIN. [Concomitant]
     Active Substance: SIMVASTATIN
     Dates: start: 20191112
  9. IPRATROPIUM [Concomitant]
     Active Substance: IPRATROPIUM
     Dates: start: 20200113
  10. FOLIC ACID. [Concomitant]
     Active Substance: FOLIC ACID
     Dates: start: 20191102
  11. METHOTREXATE. [Concomitant]
     Active Substance: METHOTREXATE
     Dates: start: 20200103

REACTIONS (3)
  - Infection [None]
  - Therapy cessation [None]
  - Condition aggravated [None]

NARRATIVE: CASE EVENT DATE: 20200116
